FAERS Safety Report 4833410-9 (Version None)
Quarter: 2005Q4

REPORT INFORMATION
  Report Type: 
  Country: None (occurrence: None)
  Receive Date: 20051117
  Receipt Date: 20051111
  Transmission Date: 20060501
  Serious: Yes (Disabling)
  Sender: FDA-Public Use
  Company Number: 2005-CZ-00919

PATIENT
  Sex: Female

DRUGS (1)
  1. FLUOXETINE  GELULE                 (FLUOXETINE) [Suspect]
     Route: 064

REACTIONS (2)
  - DEAFNESS [None]
  - DRUG EXPOSURE DURING PREGNANCY [None]
